FAERS Safety Report 8940670 (Version 10)
Quarter: 2013Q2

REPORT INFORMATION
  Report Type: Report from Study
  Country: CA (occurrence: CA)
  Receive Date: 20121203
  Receipt Date: 20130422
  Transmission Date: 20140414
  Serious: Yes (Death, Hospitalization, Other)
  Sender: FDA-Public Use
  Company Number: PHHY2012CA110147

PATIENT
  Age: 70 Year
  Sex: Male

DRUGS (1)
  1. ZOMETA [Suspect]
     Indication: PROSTATE CANCER
     Dosage: 4 MG, EVERY 4 WEEKS
     Route: 042
     Dates: start: 20120808, end: 20130413

REACTIONS (13)
  - Death [Fatal]
  - Dysstasia [Unknown]
  - Fall [Unknown]
  - Blood iron decreased [Unknown]
  - Gait disturbance [Unknown]
  - Blood glucose increased [Unknown]
  - Red blood cell count decreased [Unknown]
  - Haematocrit decreased [Unknown]
  - Iron binding capacity total decreased [Unknown]
  - Glycosylated haemoglobin increased [Unknown]
  - Blood chloride increased [Unknown]
  - Blood pressure systolic increased [Unknown]
  - Haemoglobin decreased [Unknown]
